FAERS Safety Report 26185752 (Version 1)
Quarter: 2025Q4

REPORT INFORMATION
  Report Type: Spontaneous
  Country: US (occurrence: None)
  Receive Date: 20251219
  Receipt Date: 20251219
  Transmission Date: 20260118
  Serious: No
  Sender: FDA-CTU
  Company Number: None

PATIENT
  Age: 33 Year
  Sex: Female
  Weight: 77.85 kg

DRUGS (5)
  1. DELTASONE [Suspect]
     Active Substance: PREDNISONE
     Indication: Acute sinusitis
     Dosage: OTHER QUANTITY : 21 TABLET(S);
     Route: 048
     Dates: start: 20251211, end: 20251217
  2. DELTASONE [Suspect]
     Active Substance: PREDNISONE
     Indication: Sinusitis
  3. AMOXICILLIN\CLAVULANATE POTASSIUM [Suspect]
     Active Substance: AMOXICILLIN\CLAVULANATE POTASSIUM
  4. Heart pressure cuff [Concomitant]
  5. Dr.berg b12 vitamin Ginger and tumeric tea Lemon salt water [Concomitant]

REACTIONS (15)
  - Energy increased [None]
  - Logorrhoea [None]
  - Palpitations [None]
  - Anxiety [None]
  - Paraesthesia [None]
  - Brain fog [None]
  - Dizziness [None]
  - Insomnia [None]
  - Hyperhidrosis [None]
  - Feeling abnormal [None]
  - Psychomotor hyperactivity [None]
  - Feeding disorder [None]
  - Weight decreased [None]
  - Flushing [None]
  - Pain [None]

NARRATIVE: CASE EVENT DATE: 20251211
